FAERS Safety Report 11961192 (Version 1)
Quarter: 2016Q1

REPORT INFORMATION
  Report Type: Report from Study
  Country: US (occurrence: US)
  Receive Date: 20160126
  Receipt Date: 20160126
  Transmission Date: 20160526
  Serious: No
  Sender: FDA-Public Use
  Company Number: US-ABBVIE-15K-163-1359324-00

PATIENT
  Age: 53 Year
  Sex: Female
  Weight: 75.82 kg

DRUGS (4)
  1. PREDNISONE. [Concomitant]
     Active Substance: PREDNISONE
     Indication: RHEUMATOID ARTHRITIS
  2. MELOXICAM. [Concomitant]
     Active Substance: MELOXICAM
     Indication: RHEUMATOID ARTHRITIS
  3. HUMIRA [Suspect]
     Active Substance: ADALIMUMAB
     Indication: RHEUMATOID ARTHRITIS
     Route: 058
     Dates: start: 20140917, end: 20150304
  4. PLAQUENIL [Concomitant]
     Active Substance: HYDROXYCHLOROQUINE SULFATE
     Indication: RHEUMATOID ARTHRITIS

REACTIONS (7)
  - Apathy [Not Recovered/Not Resolved]
  - Bursitis [Recovered/Resolved]
  - Asthenia [Not Recovered/Not Resolved]
  - Rash pruritic [Recovering/Resolving]
  - Rheumatoid arthritis [Recovering/Resolving]
  - Skin discolouration [Not Recovered/Not Resolved]
  - Scratch [Unknown]

NARRATIVE: CASE EVENT DATE: 201409
